FAERS Safety Report 8533202-3 (Version None)
Quarter: 2012Q3

REPORT INFORMATION
  Report Type: 
  Country: None (occurrence: None)
  Receive Date: 20120724
  Receipt Date: 20120718
  Transmission Date: 20120928
  Serious: Yes (Hospitalization)
  Sender: FDA-Public Use
  Company Number: US-BAYER-2012-042307

PATIENT
  Age: 35 Year
  Sex: Female
  Weight: 63.492 kg

DRUGS (9)
  1. BUPROPION HYDROCHLORIDE [Concomitant]
     Dosage: 100 MG, BID
     Route: 048
     Dates: start: 20091127
  2. MAXALT [Concomitant]
     Dosage: UNK
     Route: 048
     Dates: start: 20100101
  3. YAZ [Suspect]
     Indication: PREMENSTRUAL SYNDROME
  4. YAZ [Suspect]
  5. RESPIRATORY SYSTEM [Concomitant]
     Dosage: UNK
     Route: 048
     Dates: start: 20080101, end: 20110101
  6. PROZAC [Concomitant]
     Dosage: UNK
     Route: 048
     Dates: start: 20101028
  7. LOESTRIN 1.5/30 [Concomitant]
  8. YAZ [Suspect]
     Indication: CONTRACEPTION
     Dosage: UNK
     Dates: start: 20080801, end: 20100801
  9. SYNTHROID [Concomitant]
     Dosage: UNK
     Route: 048
     Dates: start: 20030101

REACTIONS (5)
  - VOMITING [None]
  - CHOLELITHIASIS [None]
  - ABDOMINAL PAIN [None]
  - NAUSEA [None]
  - CHOLECYSTITIS CHRONIC [None]
